FAERS Safety Report 9465254 (Version 2)
Quarter: 2013Q4

REPORT INFORMATION
  Report Type: Report from Study
  Country: AU (occurrence: AU)
  Receive Date: 20130819
  Receipt Date: 20131031
  Transmission Date: 20140711
  Serious: Yes (Hospitalization)
  Sender: FDA-Public Use
  Company Number: PHHY2011AU118412

PATIENT
  Age: 89 Year
  Sex: Female
  Weight: 57.7 kg

DRUGS (6)
  1. ACLASTA [Suspect]
     Dosage: 5 MG
     Route: 042
     Dates: start: 20101119
  2. ACLASTA [Suspect]
     Dosage: 5 MG
     Route: 042
     Dates: start: 20120116
  3. ACLASTA [Suspect]
     Dosage: 5 MG
     Route: 042
     Dates: start: 20130220
  4. DUROGESIC [Concomitant]
     Indication: PAIN
     Dosage: 12 UG, UNK
     Route: 061
  5. PRISTIQ [Concomitant]
     Indication: DEPRESSION
     Dosage: 100 MG, DAILY
     Route: 048
  6. ZYPREXA [Concomitant]
     Indication: PSYCHOTIC DISORDER
     Dosage: 2.5 MG, DAILY
     Route: 048

REACTIONS (1)
  - Major depression [Recovering/Resolving]
